FAERS Safety Report 18627286 (Version 1)
Quarter: 2020Q4

REPORT INFORMATION
  Report Type: Spontaneous
  Country: US (occurrence: US)
  Receive Date: 20201216
  Receipt Date: 20201216
  Transmission Date: 20210114
  Serious: Yes (Death)
  Sender: FDA-Public Use
  Company Number: None

PATIENT
  Age: 61 Year
  Sex: Male
  Weight: 95 kg

DRUGS (1)
  1. MOGAMULIZUMAB-KPKC (MOGAMULIZUMAB-KPKC 4MG/ML INJ,SOLN) [Suspect]
     Active Substance: MOGAMULIZUMAB-KPKC
     Indication: T-CELL LYMPHOMA
     Route: 042
     Dates: start: 20200918, end: 20200918

REACTIONS (17)
  - Infusion related reaction [None]
  - Metabolic acidosis [None]
  - Blood pressure systolic decreased [None]
  - Tachycardia [None]
  - Shock [None]
  - Cardiac arrest [None]
  - Electrocardiogram QRS complex shortened [None]
  - Anaphylactic reaction [None]
  - Pulmonary oedema [None]
  - Dyspnoea [None]
  - White blood cell count decreased [None]
  - Hypocalcaemia [None]
  - Tachypnoea [None]
  - Bone marrow transplant [None]
  - Chest discomfort [None]
  - Acute kidney injury [None]
  - Hypoglycaemia [None]

NARRATIVE: CASE EVENT DATE: 20200918
